FAERS Safety Report 17851442 (Version 2)
Quarter: 2020Q2

REPORT INFORMATION
  Report Type: Report from Study
  Country: US (occurrence: US)
  Receive Date: 20200602
  Receipt Date: 20200630
  Transmission Date: 20200714
  Serious: Yes (Other)
  Sender: FDA-Public Use
  Company Number: US-TAKEDA-2020TUS016931

PATIENT
  Sex: Female

DRUGS (7)
  1. BRIGATINIB [Suspect]
     Active Substance: BRIGATINIB
     Dosage: 90 MILLIGRAM
     Route: 048
     Dates: start: 202003
  2. BRIGATINIB [Suspect]
     Active Substance: BRIGATINIB
     Dosage: 180 MILLIGRAM
     Route: 048
  3. BRIGATINIB [Suspect]
     Active Substance: BRIGATINIB
     Indication: SQUAMOUS CELL CARCINOMA
     Dosage: 90 MILLIGRAM
     Route: 048
     Dates: start: 20200229
  4. BRIGATINIB [Suspect]
     Active Substance: BRIGATINIB
     Dosage: 30 MILLIGRAM
     Route: 048
  5. BRIGATINIB [Suspect]
     Active Substance: BRIGATINIB
     Indication: LUNG NEOPLASM MALIGNANT
     Dosage: 90 MILLIGRAM
     Route: 048
     Dates: start: 20200215
  6. PANTOPRAZOLE [Concomitant]
     Active Substance: PANTOPRAZOLE
     Dosage: UNK
     Route: 065
  7. BRIGATINIB [Suspect]
     Active Substance: BRIGATINIB
     Dosage: 180 MILLIGRAM
     Route: 048
     Dates: start: 20200321

REACTIONS (10)
  - Hepatic enzyme increased [Recovered/Resolved]
  - Diarrhoea [Unknown]
  - Metastases to central nervous system [Unknown]
  - Tension [Unknown]
  - Asthenia [Unknown]
  - Off label use [Unknown]
  - Abdominal discomfort [Not Recovered/Not Resolved]
  - Eructation [Unknown]
  - Fatigue [Unknown]
  - Flatulence [Unknown]
